FAERS Safety Report 22177909 (Version 1)
Quarter: 2023Q2

REPORT INFORMATION
  Report Type: Spontaneous
  Country: PT (occurrence: PT)
  Receive Date: 20230405
  Receipt Date: 20230405
  Transmission Date: 20230722
  Serious: Yes (Death, Other)
  Sender: FDA-Public Use
  Company Number: PT-AMGEN-PRTSP2023056072

PATIENT

DRUGS (3)
  1. BEVACIZUMAB [Suspect]
     Active Substance: BEVACIZUMAB
     Indication: Glioblastoma
     Dosage: 10 MILLIGRAM PER KILOGRAM, Q2WK
     Route: 065
  2. IRINOTECAN [Concomitant]
     Active Substance: IRINOTECAN
     Indication: Glioblastoma
     Dosage: 125 MILLIGRAM PER SQUARE METRE, Q2WK
  3. IRINOTECAN [Concomitant]
     Active Substance: IRINOTECAN
     Dosage: 20% DOSE REDUCTION

REACTIONS (7)
  - Death [Fatal]
  - Thrombocytopenia [Unknown]
  - Therapy partial responder [Unknown]
  - Eastern Cooperative Oncology Group performance status worsened [Unknown]
  - Anaemia [Unknown]
  - Diarrhoea [Unknown]
  - Fatigue [Unknown]
